FAERS Safety Report 10472815 (Version 1)
Quarter: 2014Q3

REPORT INFORMATION
  Report Type: Spontaneous
  Country: SE (occurrence: SE)
  Receive Date: 20140924
  Receipt Date: 20140924
  Transmission Date: 20150326
  Serious: Yes (Disabling)
  Sender: FDA-Public Use
  Company Number: SE-JNJFOC-20140916135

PATIENT
  Age: 36 Year
  Sex: Male

DRUGS (6)
  1. XEPLION [Suspect]
     Active Substance: PALIPERIDONE PALMITATE
     Indication: BIPOLAR DISORDER
     Route: 030
     Dates: start: 2012, end: 2012
  2. XEPLION [Suspect]
     Active Substance: PALIPERIDONE PALMITATE
     Indication: SCHIZOPHRENIA
     Route: 030
     Dates: start: 2012, end: 2012
  3. XEPLION [Suspect]
     Active Substance: PALIPERIDONE PALMITATE
     Indication: BIPOLAR DISORDER
     Route: 030
     Dates: start: 2014
  4. XEPLION [Suspect]
     Active Substance: PALIPERIDONE PALMITATE
     Indication: SCHIZOPHRENIA
     Route: 030
     Dates: start: 2014
  5. RISPERDAL [Concomitant]
     Active Substance: RISPERIDONE
     Route: 065
  6. LITHIUM [Concomitant]
     Active Substance: LITHIUM CARBONATE
     Route: 065

REACTIONS (4)
  - Increased appetite [Unknown]
  - Tremor [Unknown]
  - Mania [Unknown]
  - Decreased activity [Unknown]

NARRATIVE: CASE EVENT DATE: 2012
